FAERS Safety Report 25473263 (Version 2)
Quarter: 2025Q3

REPORT INFORMATION
  Report Type: Report from Study
  Country: EG (occurrence: EG)
  Receive Date: 20250624
  Receipt Date: 20250702
  Transmission Date: 20251021
  Serious: Yes (Hospitalization, Other)
  Sender: NOVARTIS
  Company Number: EG-002147023-NVSC2025EG091611

PATIENT
  Age: 29 Year
  Sex: Female
  Weight: 60 kg

DRUGS (2)
  1. KISQALI [Suspect]
     Active Substance: RIBOCICLIB SUCCINATE
     Indication: Breast cancer metastatic
     Dosage: 2 DOSAGE FORM, QD (TWO TABLETS ONCE DAILY FOR THIRTY DAYS)
     Route: 048
  2. KISQALI [Suspect]
     Active Substance: RIBOCICLIB SUCCINATE
     Dosage: 3 DOSAGE FORM, QD (FOR 21 DAYS AND 7 DAYS OFF)
     Route: 048
     Dates: start: 202302

REACTIONS (16)
  - Coronavirus infection [Recovered/Resolved]
  - Stress [Not Recovered/Not Resolved]
  - Vitiligo [Not Recovered/Not Resolved]
  - Hepatic enzyme increased [Recovered/Resolved]
  - Epstein-Barr virus infection [Recovered/Resolved]
  - Fatigue [Not Recovered/Not Resolved]
  - Off label use [Unknown]
  - Abdominal pain [Not Recovered/Not Resolved]
  - Back pain [Not Recovered/Not Resolved]
  - Disturbance in attention [Not Recovered/Not Resolved]
  - Asthenia [Not Recovered/Not Resolved]
  - Cough [Recovering/Resolving]
  - Chest pain [Recovering/Resolving]
  - Breast pain [Recovering/Resolving]
  - Haemoglobin decreased [Recovered/Resolved]
  - Decreased immune responsiveness [Recovered/Resolved]

NARRATIVE: CASE EVENT DATE: 20230201
